FAERS Safety Report 17951316 (Version 1)
Quarter: 2020Q2

REPORT INFORMATION
  Report Type: Spontaneous
  Country: NL (occurrence: NL)
  Receive Date: 20200626
  Receipt Date: 20200626
  Transmission Date: 20200714
  Serious: Yes (Death, Life-Threatening, Other)
  Sender: FDA-Public Use
  Company Number: NVSC2020NL179561

PATIENT
  Sex: Female

DRUGS (5)
  1. PIPERACILLINE/TAZOBACTAM 4 G/ 0,5 G POEDER VOOR OPLOSSING VOOR INFUSIE [Suspect]
     Active Substance: PIPERACILLIN SODIUM\TAZOBACTAM SODIUM
     Indication: PNEUMONIA
     Dosage: 1 DF, Q8H (3 X PER DAG 4500 MG)
     Route: 065
     Dates: start: 20200118, end: 20200122
  2. METFORMINE [Concomitant]
     Active Substance: METFORMIN HYDROCHLORIDE
     Indication: PRODUCT USED FOR UNKNOWN INDICATION
     Dosage: 500 MG (TABLET MET GEREGULEERDE AFGIFTE)
     Route: 065
  3. NADROPARINE [Concomitant]
     Active Substance: NADROPARIN
     Indication: PRODUCT USED FOR UNKNOWN INDICATION
     Dosage: UNK (INJECTIEVLOEISTOF, 9500 IE/ML (EENHEDEN PER MILLILITER))
     Route: 065
  4. SALBUTAMOL [Concomitant]
     Active Substance: ALBUTEROL
     Indication: PRODUCT USED FOR UNKNOWN INDICATION
     Dosage: 1 MG/ML (VERNEVELVLOEISTOF,)
     Route: 065
  5. MORFINE [Concomitant]
     Active Substance: MORPHINE
     Indication: PRODUCT USED FOR UNKNOWN INDICATION
     Dosage: 10 MG/ML (INJECTIEVLOEISTOF)
     Route: 065

REACTIONS (1)
  - Acute kidney injury [Fatal]
